FAERS Safety Report 18036349 (Version 1)
Quarter: 2020Q3

REPORT INFORMATION
  Report Type: Report from Study
  Country: US (occurrence: US)
  Receive Date: 20200717
  Receipt Date: 20200717
  Transmission Date: 20201103
  Serious: No
  Sender: FDA-Public Use
  Company Number: NVSC2020US196033

PATIENT
  Age: 64 Year
  Sex: Male

DRUGS (1)
  1. ENTRESTO [Suspect]
     Active Substance: SACUBITRIL\VALSARTAN
     Indication: CARDIAC FAILURE CONGESTIVE
     Dosage: 24.26 MG, BID
     Route: 048
     Dates: start: 202006

REACTIONS (10)
  - Dyspnoea [Unknown]
  - Memory impairment [Unknown]
  - Product dose omission issue [Unknown]
  - Stress [Unknown]
  - Pain in extremity [Unknown]
  - Peripheral swelling [Unknown]
  - Weight increased [Unknown]
  - Wrong technique in product usage process [Unknown]
  - Insomnia [Unknown]
  - Asthenia [Unknown]

NARRATIVE: CASE EVENT DATE: 202006
